FAERS Safety Report 5744222-6 (Version None)
Quarter: 2008Q2

REPORT INFORMATION
  Report Type: 
  Country: None (occurrence: None)
  Receive Date: 20080516
  Receipt Date: 20080516
  Transmission Date: 20081010
  Serious: Yes (Other)
  Sender: FDA-Public Use
  Company Number: None

PATIENT
  Age: 54 Year
  Sex: Male
  Weight: 111 kg

DRUGS (4)
  1. PIPERACILLIN AND TAZOBACTAM [Suspect]
     Indication: CATHETER SITE DISCHARGE
     Dosage: 3.375 GRAMS Q6H IV BOLUS
     Route: 040
     Dates: start: 20080405, end: 20080411
  2. PIPERACILLIN AND TAZOBACTAM [Suspect]
     Indication: PYREXIA
     Dosage: 3.375 GRAMS Q6H IV BOLUS
     Route: 040
     Dates: start: 20080405, end: 20080411
  3. PYRIDOSTIGMINE BROMIDE [Concomitant]
  4. VANCOMYCIN [Concomitant]

REACTIONS (2)
  - CONDITION AGGRAVATED [None]
  - MYASTHENIA GRAVIS [None]
